FAERS Safety Report 4343156-1 (Version None)
Quarter: 2004Q2

REPORT INFORMATION
  Report Type: 
  Country: None (occurrence: None)
  Receive Date: 20040416
  Receipt Date: 20040406
  Transmission Date: 20050107
  Serious: Yes (Death)
  Sender: FDA-Public Use
  Company Number: US-JNJFOC-20040202435

PATIENT
  Age: 67 Year
  Sex: Male
  Weight: 112.4921 kg

DRUGS (5)
  1. LEVAQUIN [Suspect]
     Indication: CELLULITIS
     Dosage: 500 MG, 1 IN 1 DAY, ORAL
     Route: 048
     Dates: start: 20031230
  2. AMIODARONE HCL [Suspect]
     Indication: ATRIAL FIBRILLATION
     Dosage: 200 MG, 2 IN 1 DAY, ORAL
     Route: 048
     Dates: start: 20031204
  3. LIPITOR [Concomitant]
  4. DIOVAN/HCT (CO-DIOVAN) [Concomitant]
  5. ATENOLOL [Concomitant]

REACTIONS (8)
  - ARRHYTHMIA [None]
  - CORONARY ARTERY ATHEROSCLEROSIS [None]
  - ELECTROCARDIOGRAM QT PROLONGED [None]
  - HYPERTENSIVE HEART DISEASE [None]
  - PERICARDIAL EFFUSION [None]
  - POST PROCEDURAL COMPLICATION [None]
  - ROAD TRAFFIC ACCIDENT [None]
  - SUDDEN DEATH [None]
